FAERS Safety Report 5267639-5 (Version None)
Quarter: 2007Q1

REPORT INFORMATION
  Report Type: 
  Country: None (occurrence: None)
  Receive Date: 20070316
  Receipt Date: 20070315
  Transmission Date: 20070707
  Serious: Yes (Hospitalization, Other)
  Sender: FDA-Public Use
  Company Number: KR-BRISTOL-MYERS SQUIBB COMPANY-13634829

PATIENT
  Age: 65 Year
  Sex: Female

DRUGS (8)
  1. CETUXIMAB [Suspect]
     Indication: RECTAL CANCER
     Route: 042
     Dates: start: 20061116, end: 20061221
  2. IRINOTECAN [Suspect]
     Indication: RECTAL CANCER
     Route: 042
     Dates: start: 20061116, end: 20061221
  3. CAPECITABINE [Suspect]
     Indication: RECTAL CANCER
     Route: 048
     Dates: start: 20061116, end: 20061228
  4. PHENIRAMINE [Concomitant]
     Indication: DRUG USE FOR UNKNOWN INDICATION
     Dates: start: 20061221
  5. METOCLOPRAMIDE [Concomitant]
     Indication: DRUG USE FOR UNKNOWN INDICATION
     Dates: start: 20061221
  6. HYDROCODONE [Concomitant]
     Indication: DRUG USE FOR UNKNOWN INDICATION
     Dates: start: 20061226
  7. SODIUM BICARBONATE [Concomitant]
     Indication: DRUG USE FOR UNKNOWN INDICATION
     Dates: start: 20061221, end: 20061224
  8. URSODIOL [Concomitant]
     Indication: DRUG USE FOR UNKNOWN INDICATION
     Dates: start: 20061221, end: 20061224

REACTIONS (8)
  - ABDOMINAL PAIN [None]
  - AZOTAEMIA [None]
  - DEHYDRATION [None]
  - DIARRHOEA [None]
  - ILEUS [None]
  - LEUKOPENIA [None]
  - NAUSEA [None]
  - VOMITING [None]
